FAERS Safety Report 7057063-7 (Version None)
Quarter: 2010Q4

REPORT INFORMATION
  Report Type: 
  Country: None (occurrence: None)
  Receive Date: 20101021
  Receipt Date: 20101021
  Transmission Date: 20110411
  Serious: No
  Sender: FDA-Public Use
  Company Number: None

PATIENT
  Sex: Male

DRUGS (3)
  1. DIAZEPAM [Suspect]
  2. XANAX [Suspect]
  3. PAXIL [Concomitant]

REACTIONS (4)
  - AGITATION [None]
  - CONDITION AGGRAVATED [None]
  - DRUG INEFFECTIVE [None]
  - INSOMNIA [None]
